FAERS Safety Report 6054411-1 (Version None)
Quarter: 2009Q1

REPORT INFORMATION
  Report Type: 
  Country: None (occurrence: None)
  Receive Date: 20090127
  Receipt Date: 20090119
  Transmission Date: 20090719
  Serious: Yes (Hospitalization, Other)
  Sender: FDA-Public Use
  Company Number: PHHY2009MX02233

PATIENT
  Sex: Male

DRUGS (1)
  1. EXFORGE [Suspect]
     Indication: HYPERTENSION
     Dosage: 160 MG VALSARTAN/5 MG AMLODIPINE
     Route: 048
     Dates: end: 20090110

REACTIONS (3)
  - DIALYSIS [None]
  - HYPOGLYCAEMIA [None]
  - RENAL FAILURE [None]
